FAERS Safety Report 19451068 (Version 2)
Quarter: 2022Q1

REPORT INFORMATION
  Report Type: Spontaneous
  Country: US (occurrence: US)
  Receive Date: 20210622
  Receipt Date: 20220224
  Transmission Date: 20220424
  Serious: No
  Sender: FDA-Public Use
  Company Number: US-MYLANLABS-2021M1031693

PATIENT
  Sex: Female

DRUGS (1)
  1. ATENOLOL [Suspect]
     Active Substance: ATENOLOL
     Indication: Hypertension
     Dosage: UNK
     Route: 048

REACTIONS (8)
  - Product physical issue [Unknown]
  - Product quality issue [Unknown]
  - Abnormal dreams [Unknown]
  - Sleep deficit [Unknown]
  - Quality of life decreased [Unknown]
  - Heart rate decreased [Unknown]
  - Nightmare [Unknown]
  - Therapeutic product effect decreased [Unknown]

NARRATIVE: CASE EVENT DATE: 20210101
